FAERS Safety Report 16755276 (Version 1)
Quarter: 2019Q3

REPORT INFORMATION
  Report Type: Spontaneous
  Country: CA (occurrence: CA)
  Receive Date: 20190829
  Receipt Date: 20190829
  Transmission Date: 20191005
  Serious: Yes (Other)
  Sender: FDA-Public Use
  Company Number: CA-MERZ NORTH AMERICA, INC.-19MRZ-00342

PATIENT
  Age: 76 Year
  Sex: Female

DRUGS (5)
  1. GABAPENTIN. [Concomitant]
     Active Substance: GABAPENTIN
     Indication: MIGRAINE
     Dosage: UNKNOWN
  2. CANDESARTAN CILEXETIL. [Suspect]
     Active Substance: CANDESARTAN CILEXETIL
     Indication: MIGRAINE
     Dosage: UNKNOWN
  3. XEOMIN [Suspect]
     Active Substance: INCOBOTULINUMTOXINA
     Indication: MIGRAINE
     Dosage: UNKNOWN
  4. CYPROHEPTADINE. [Suspect]
     Active Substance: CYPROHEPTADINE
     Indication: MIGRAINE
     Dosage: UNKNOWN
  5. MEMANTINE. [Suspect]
     Active Substance: MEMANTINE
     Indication: MIGRAINE
     Dosage: UNKNOWN

REACTIONS (6)
  - Off label use [Recovered/Resolved]
  - Drug ineffective [Recovered/Resolved]
  - Periorbital oedema [Recovered/Resolved]
  - Drug intolerance [Recovered/Resolved]
  - Anaphylactic reaction [Recovered/Resolved]
  - Muscle spasms [Recovered/Resolved]
